FAERS Safety Report 16912493 (Version 2)
Quarter: 2019Q4

REPORT INFORMATION
  Report Type: Spontaneous
  Country: US (occurrence: US)
  Receive Date: 20191014
  Receipt Date: 20191016
  Transmission Date: 20200122
  Serious: No
  Sender: FDA-Public Use
  Company Number: US-AMGEN-USASP2019165778

PATIENT
  Age: 51 Year
  Sex: Female

DRUGS (1)
  1. ENBREL [Suspect]
     Active Substance: ETANERCEPT
     Indication: RHEUMATOID ARTHRITIS
     Dosage: UNK
     Route: 065
     Dates: start: 2019

REACTIONS (8)
  - Incorrect dose administered [Unknown]
  - Hypersensitivity [Unknown]
  - Injection site swelling [Unknown]
  - Injection site pruritus [Unknown]
  - Injection site erythema [Unknown]
  - Injection site rash [Unknown]
  - Wrong technique in product usage process [Unknown]
  - Injection site bruising [Unknown]

NARRATIVE: CASE EVENT DATE: 2019
